FAERS Safety Report 8306079-9 (Version None)
Quarter: 2012Q2

REPORT INFORMATION
  Report Type: 
  Country: None (occurrence: None)
  Receive Date: 20120423
  Receipt Date: 20120416
  Transmission Date: 20120825
  Serious: No
  Sender: FDA-Public Use
  Company Number: US-BAYER-2012-039139

PATIENT
  Age: 57 Year
  Sex: Female
  Weight: 73 kg

DRUGS (3)
  1. SUMATRIPTAN SUCCINATE [Concomitant]
  2. ZIPRASIDONE HYDROCHLORIDE [Concomitant]
  3. ALEVE (CAPLET) [Suspect]
     Indication: HEADACHE
     Dosage: 220 MG, FOUR TIMES A DAY
     Route: 048

REACTIONS (2)
  - BLOOD CALCIUM INCREASED [None]
  - HEADACHE [None]
